FAERS Safety Report 9842839 (Version 1)
Quarter: 2013Q4

REPORT INFORMATION
  Report Type: Spontaneous
  Country: US (occurrence: None)
  Receive Date: 20131223
  Receipt Date: 20131223
  Transmission Date: 20140711
  Serious: No
  Sender: FDA-Public Use
  Company Number: 221466LEO

PATIENT
  Age: 42 Year
  Sex: Female

DRUGS (1)
  1. PICATO (0.015%, GEL) [Suspect]
     Indication: ACTINIC KERATOSIS
     Dosage: 1 IN 1 D, TOPICAL
     Route: 061
     Dates: start: 20130425, end: 20130425

REACTIONS (6)
  - Swelling face [None]
  - Eye swelling [None]
  - Eyelid oedema [None]
  - Application site swelling [None]
  - Drug administered at inappropriate site [None]
  - Incorrect drug administration duration [None]
